FAERS Safety Report 7269778-6 (Version None)
Quarter: 2011Q1

REPORT INFORMATION
  Report Type: 
  Country: None (occurrence: None)
  Receive Date: 20110126
  Receipt Date: 20110111
  Transmission Date: 20110831
  Serious: Yes (Other)
  Sender: FDA-Public Use
  Company Number: 2011AP000028

PATIENT
  Age: 9 Year
  Sex: Female

DRUGS (5)
  1. LAMOTRIGINE [Suspect]
     Indication: EPILEPSY
     Dosage: 5 MG PO
     Route: 048
     Dates: start: 20101213
  2. AMOXICILLIN [Suspect]
     Dosage: PO
     Route: 048
     Dates: start: 20101220, end: 20101228
  3. SALBUTAMOL (SALBUTAMOL) [Concomitant]
  4. BECLOMETHASONE DIPROPIONATE [Concomitant]
  5. VALPROATE SODIUM [Concomitant]

REACTIONS (7)
  - UPPER RESPIRATORY TRACT INFECTION [None]
  - STEVENS-JOHNSON SYNDROME [None]
  - EYE PAIN [None]
  - LIP PAIN [None]
  - RASH GENERALISED [None]
  - RHINITIS [None]
  - LIP DRY [None]
